FAERS Safety Report 6668831-5 (Version None)
Quarter: 2010Q2

REPORT INFORMATION
  Report Type: 
  Country: None (occurrence: None)
  Receive Date: 20100401
  Receipt Date: 20100319
  Transmission Date: 20101027
  Serious: Yes (Hospitalization)
  Sender: FDA-Public Use
  Company Number: 009224

PATIENT
  Sex: Female

DRUGS (6)
  1. CERTOLIZUMAB PEGOL (CERTOLIZUMAB PEGOL) [Suspect]
     Indication: RHEUMATOID ARTHRITIS
     Dosage: (400 MG  1X/4 WEEKS, STUDY 870-IFL-0587-014 SUBCUTANEOUS), (400 MG 1X/4 WEEKS SUBCUTANEOUS)
     Route: 058
     Dates: start: 20030507, end: 20030924
  2. CERTOLIZUMAB PEGOL (CERTOLIZUMAB PEGOL) [Suspect]
     Indication: RHEUMATOID ARTHRITIS
     Dosage: (400 MG  1X/4 WEEKS, STUDY 870-IFL-0587-014 SUBCUTANEOUS), (400 MG 1X/4 WEEKS SUBCUTANEOUS)
     Route: 058
     Dates: start: 20031124, end: 20100223
  3. IBUPROFEN [Concomitant]
  4. METHYLPREDNISOLONE [Concomitant]
  5. SULPIRID [Concomitant]
  6. TRAZODONE [Concomitant]

REACTIONS (1)
  - PYELONEPHRITIS ACUTE [None]
